FAERS Safety Report 9781053 (Version 1)
Quarter: 2013Q4

REPORT INFORMATION
  Report Type: Spontaneous
  Country: US (occurrence: None)
  Receive Date: 20131223
  Receipt Date: 20131223
  Transmission Date: 20140711
  Serious: Yes (Other)
  Sender: FDA-Public Use
  Company Number: None

PATIENT
  Age: 66 Year
  Sex: Male
  Weight: 109.77 kg

DRUGS (1)
  1. CLINDAMYCIN [Suspect]
     Indication: EAR INFECTION
     Dosage: 30 CAPSULES THREE TIMES DAILY TAKEN BY MOUTH
     Route: 048
     Dates: start: 20131209, end: 20131219

REACTIONS (4)
  - Vomiting [None]
  - Retching [None]
  - Rash erythematous [None]
  - Pruritus generalised [None]
